FAERS Safety Report 5724983-2 (Version None)
Quarter: 2008Q2

REPORT INFORMATION
  Report Type: 
  Country: None (occurrence: None)
  Receive Date: 20080430
  Receipt Date: 20080430
  Transmission Date: 20081010
  Serious: Yes (Other)
  Sender: FDA-Public Use
  Company Number: None

PATIENT
  Age: 27 Year
  Sex: Female
  Weight: 90.7194 kg

DRUGS (1)
  1. YASMIN [Suspect]
     Indication: ORAL CONTRACEPTION
     Dosage: 3MG/0.03 DAILY PO
     Route: 048
     Dates: start: 20071201, end: 20080301

REACTIONS (3)
  - DRUG ERUPTION [None]
  - ERYTHEMA [None]
  - SKIN HYPERPIGMENTATION [None]
